FAERS Safety Report 7218462-3 (Version None)
Quarter: 2011Q1

REPORT INFORMATION
  Report Type: 
  Country: None (occurrence: None)
  Receive Date: 20110110
  Receipt Date: 20110104
  Transmission Date: 20110831
  Serious: Yes (Hospitalization)
  Sender: FDA-Public Use
  Company Number: FR-PFIZER INC-2011002145

PATIENT
  Age: 56 Year
  Sex: Male
  Weight: 105 kg

DRUGS (1)
  1. ADVIL [Suspect]
     Dosage: 400 MG, SINGLE
     Route: 048
     Dates: start: 20100919, end: 20100919

REACTIONS (2)
  - RENAL FAILURE ACUTE [None]
  - PNEUMONIA [None]
